FAERS Safety Report 17840646 (Version 1)
Quarter: 2020Q2

REPORT INFORMATION
  Report Type: Spontaneous
  Country: US (occurrence: US)
  Receive Date: 20200529
  Receipt Date: 20200529
  Transmission Date: 20200714
  Serious: Yes (Hospitalization)
  Sender: FDA-Public Use
  Company Number: None

PATIENT
  Age: 54 Year
  Sex: Female

DRUGS (7)
  1. PIQRAY [Suspect]
     Active Substance: ALPELISIB
     Indication: BREAST CANCER FEMALE
     Route: 048
     Dates: start: 20200408, end: 20200510
  2. TRAMADOL. [Concomitant]
     Active Substance: TRAMADOL
  3. XARELTO [Concomitant]
     Active Substance: RIVAROXABAN
  4. GABAPENTIN. [Concomitant]
     Active Substance: GABAPENTIN
  5. EXEMESTANE. [Concomitant]
     Active Substance: EXEMESTANE
  6. AFINITOR [Concomitant]
     Active Substance: EVEROLIMUS
  7. DEXAMETHASONE. [Concomitant]
     Active Substance: DEXAMETHASONE

REACTIONS (4)
  - Diarrhoea [None]
  - Constipation [None]
  - Intestinal perforation [None]
  - Colostomy [None]

NARRATIVE: CASE EVENT DATE: 20200510
